FAERS Safety Report 8837205 (Version 2)
Quarter: 2013Q1

REPORT INFORMATION
  Report Type: Spontaneous
  Country: FR (occurrence: FR)
  Receive Date: 20121012
  Receipt Date: 20130313
  Transmission Date: 20140127
  Serious: Yes (Hospitalization)
  Sender: FDA-Public Use
  Company Number: PHHY2012FR088684

PATIENT
  Age: 1 Year
  Sex: Female
  Weight: 6 kg

DRUGS (4)
  1. ILARIS [Suspect]
     Dosage: 12 MG, EVERY 8 WEEKS
     Dates: start: 20110308, end: 20110627
  2. ILARIS [Suspect]
     Dosage: 12 MG, EVERY 8 WEEKS
     Dates: start: 201110, end: 201112
  3. ILARIS [Suspect]
     Dosage: 22 MG, EVERY 8 WEEKS
     Dates: start: 201201, end: 201210
  4. ILARIS [Suspect]
     Dosage: 30 MG, EVERY 8 WEEKS
     Dates: start: 20121126

REACTIONS (4)
  - Urinary tract infection [Recovered/Resolved]
  - Pyelonephritis acute [Recovering/Resolving]
  - Pyrexia [Unknown]
  - Inappropriate schedule of drug administration [Unknown]
